FAERS Safety Report 17807503 (Version 1)
Quarter: 2020Q2

REPORT INFORMATION
  Report Type: Spontaneous
  Country: US (occurrence: US)
  Receive Date: 20200520
  Receipt Date: 20200520
  Transmission Date: 20200714
  Serious: Yes (Hospitalization, Other)
  Sender: FDA-Public Use
  Company Number: US-PFIZER INC-2020198232

PATIENT
  Age: 52 Year
  Sex: Male
  Weight: 72.57 kg

DRUGS (1)
  1. XELJANZ XR [Suspect]
     Active Substance: TOFACITINIB CITRATE
     Indication: RHEUMATOID ARTHRITIS
     Dosage: 0.5 DF, 1X/DAY (11MG TABLET, HALF TABLET ONCE A DAY BY MOUTH)
     Route: 048
     Dates: start: 2019

REACTIONS (4)
  - Intentional underdose [Unknown]
  - Cerebrovascular accident [Unknown]
  - Wrong technique in product usage process [Unknown]
  - Coma [Unknown]

NARRATIVE: CASE EVENT DATE: 202003
